FAERS Safety Report 5038232-4 (Version None)
Quarter: 2006Q2

REPORT INFORMATION
  Report Type: 
  Country: None (occurrence: None)
  Receive Date: 20060601
  Receipt Date: 20060125
  Transmission Date: 20061013
  Serious: No
  Sender: FDA-Public Use
  Company Number: 2006PV007614

PATIENT
  Age: 58 Year
  Sex: Female
  Weight: 72.1219 kg

DRUGS (6)
  1. BYETTA [Suspect]
     Indication: DIABETES MELLITUS NON-INSULIN-DEPENDENT
     Dosage: 5 MCG;BID;SC
     Route: 058
     Dates: start: 20060117
  2. METFORMIN [Suspect]
     Indication: DRUG USE FOR UNKNOWN INDICATION
     Dosage: HS;PO
     Route: 048
  3. AMARYL [Concomitant]
  4. ACTOS /USA/ [Concomitant]
  5. STARLIX [Concomitant]
  6. ASPIRIN [Concomitant]

REACTIONS (3)
  - DIARRHOEA [None]
  - INJECTION SITE BRUISING [None]
  - INJECTION SITE HAEMORRHAGE [None]
